FAERS Safety Report 11288663 (Version 1)
Quarter: 2015Q3

REPORT INFORMATION
  Report Type: Spontaneous
  Country: US (occurrence: US)
  Receive Date: 20150721
  Receipt Date: 20150721
  Transmission Date: 20151125
  Serious: No
  Sender: FDA-Public Use
  Company Number: US-TEVA-579047USA

PATIENT
  Age: 43 Year
  Sex: Female

DRUGS (8)
  1. COPAXONE [Suspect]
     Active Substance: GLATIRAMER ACETATE
     Indication: MULTIPLE SCLEROSIS
     Dates: start: 201408
  2. FISH OIL [Concomitant]
     Active Substance: FISH OIL
     Route: 065
  3. LOVAZA [Concomitant]
     Active Substance: OMEGA-3-ACID ETHYL ESTERS
     Route: 065
  4. LISINOPRIL. [Concomitant]
     Active Substance: LISINOPRIL
     Route: 065
  5. AMOXICILLIN. [Concomitant]
     Active Substance: AMOXICILLIN
     Route: 065
  6. METRONIDAZOL [Concomitant]
     Active Substance: METRONIDAZOLE
     Route: 065
  7. EXCITALOPRAM [Concomitant]
     Route: 065
  8. DOXYCYCLINE HYCLATE. [Concomitant]
     Active Substance: DOXYCYCLINE HYCLATE
     Route: 065

REACTIONS (3)
  - Dyspnoea [Recovered/Resolved]
  - Heart rate increased [Unknown]
  - Injection site reaction [Recovered/Resolved]

NARRATIVE: CASE EVENT DATE: 201507
